FAERS Safety Report 15988200 (Version 1)
Quarter: 2019Q1

REPORT INFORMATION
  Report Type: Spontaneous
  Country: US (occurrence: US)
  Receive Date: 20190221
  Receipt Date: 20190221
  Transmission Date: 20190418
  Serious: No
  Sender: FDA-Public Use
  Company Number: US-AMGEN-USASP2019024529

PATIENT
  Age: 82 Year
  Sex: Female

DRUGS (2)
  1. REPATHA [Suspect]
     Active Substance: EVOLOCUMAB
     Indication: ATRIAL FIBRILLATION
     Dosage: 140 MG, Q2WK
     Route: 065
     Dates: start: 201810
  2. REPATHA [Suspect]
     Active Substance: EVOLOCUMAB
     Dosage: 140 MG, Q2WK
     Route: 065

REACTIONS (5)
  - Device issue [Unknown]
  - Wrong technique in product usage process [Unknown]
  - Incorrect dose administered by device [Unknown]
  - Accidental exposure to product [Unknown]
  - Off label use [Unknown]
